FAERS Safety Report 7444770-7 (Version None)
Quarter: 2011Q2

REPORT INFORMATION
  Report Type: 
  Country: None (occurrence: None)
  Receive Date: 20110427
  Receipt Date: 20110427
  Transmission Date: 20111010
  Serious: Yes (Hospitalization)
  Sender: FDA-Public Use
  Company Number: None

PATIENT
  Age: 77 Year
  Sex: Male
  Weight: 99 kg

DRUGS (1)
  1. METOPROLOL SUCCINATE [Suspect]
     Dosage: 25 MG BID PO
     Route: 048
     Dates: start: 20080609, end: 20101018

REACTIONS (1)
  - BRADYCARDIA [None]
